FAERS Safety Report 19808541 (Version 1)
Quarter: 2021Q3

REPORT INFORMATION
  Report Type: Report from Study
  Country: FR (occurrence: FR)
  Receive Date: 20210908
  Receipt Date: 20210908
  Transmission Date: 20211014
  Serious: Yes (Death)
  Sender: FDA-Public Use
  Company Number: FR-PFIZER INC-202101033351

PATIENT
  Sex: Male

DRUGS (5)
  1. DEXAMETHASONE. [Suspect]
     Active Substance: DEXAMETHASONE
     Indication: MANTLE CELL LYMPHOMA
     Dosage: 20 MG, CYCLIC (TWICE DAILY FROM DAY 1 TO 4)
  2. RITUXIMAB. [Suspect]
     Active Substance: RITUXIMAB
     Indication: MANTLE CELL LYMPHOMA
     Dosage: 375 MG/M2, CYCLIC (ON DAY 1 (AND DAY 8 OF CYCLE 1)
  3. DOXORUBICIN HCL [Suspect]
     Active Substance: DOXORUBICIN HYDROCHLORIDE
     Indication: MANTLE CELL LYMPHOMA
     Dosage: 9 MG/M2/DAY AS A CONTINUOUS INFUSION FROM DAY 1 TO 4
  4. VELCADE [Suspect]
     Active Substance: BORTEZOMIB
     Indication: MANTLE CELL LYMPHOMA
     Dosage: 1.3 MG/M2, CYCLIC (ON DAYS 1, 4, 8 AND 11)
  5. CHLORAMBUCIL [Suspect]
     Active Substance: CHLORAMBUCIL
     Indication: MANTLE CELL LYMPHOMA
     Dosage: 12 MG/24H, CYCLIC (FROM DAY 20 TO 29)

REACTIONS (4)
  - Fungal infection [Fatal]
  - Sepsis [Fatal]
  - Neutropenia [Fatal]
  - Bacterial infection [Fatal]
